FAERS Safety Report 6420355-6 (Version None)
Quarter: 2009Q4

REPORT INFORMATION
  Report Type: 
  Country: None (occurrence: None)
  Receive Date: 20091029
  Receipt Date: 20091027
  Transmission Date: 20100525
  Serious: Yes (Other)
  Sender: FDA-Public Use
  Company Number: DE-B.I. PHARMACEUTICALS,INC./RIDGEFIELD-2009-DE-06702DE

PATIENT
  Sex: Male

DRUGS (4)
  1. ALNA OCAS [Suspect]
     Indication: NOCTURIA
     Dosage: 1 ANZ
  2. BELOC ZOC [Concomitant]
  3. AMIODARONE HCL [Concomitant]
  4. EMSELEX [Concomitant]

REACTIONS (3)
  - CHEST DISCOMFORT [None]
  - DYSPNOEA [None]
  - OEDEMA [None]
